FAERS Safety Report 5535773-8 (Version None)
Quarter: 2007Q4

REPORT INFORMATION
  Report Type: 
  Country: None (occurrence: None)
  Receive Date: 20071203
  Receipt Date: 20071203
  Transmission Date: 20080405
  Serious: Yes (Death)
  Sender: FDA-Public Use
  Company Number: None

PATIENT
  Age: 5 Month
  Sex: Female
  Weight: 5.1 kg

DRUGS (4)
  1. ISONIAZID [Suspect]
     Indication: TUBERCULOSIS
     Dosage: 50 MG DAILY ORAL
     Route: 048
     Dates: start: 20070910, end: 20070927
  2. TRIMETHOPRIM + SULFAMETHOXAZOLE [Suspect]
     Indication: PNEUMOCYSTIS JIROVECI INFECTION
     Dosage: 3 ML DAILY ORAL
     Route: 048
     Dates: start: 20070719, end: 20070927
  3. FERROUS GLUCONATE [Concomitant]
  4. FOLATE [Concomitant]

REACTIONS (6)
  - DRUG TOXICITY [None]
  - FONTANELLE DEPRESSED [None]
  - RESPIRATORY ACIDOSIS [None]
  - RESPIRATORY ARREST [None]
  - RESPIRATORY DISTRESS [None]
  - RESPIRATORY RATE INCREASED [None]
